FAERS Safety Report 7961737-0 (Version None)
Quarter: 2011Q4

REPORT INFORMATION
  Report Type: 
  Country: None (occurrence: None)
  Receive Date: 20111202
  Receipt Date: 20111202
  Transmission Date: 20120403
  Serious: Yes (Other)
  Sender: FDA-Public Use
  Company Number: None

PATIENT
  Age: 59 Year
  Sex: Female
  Weight: 81.6475 kg

DRUGS (1)
  1. PRAVACHOL [Suspect]
     Indication: BLOOD CHOLESTEROL INCREASED
     Dosage: 40MG 1 A DAY
     Dates: start: 20110701, end: 20111001

REACTIONS (10)
  - NAUSEA [None]
  - EPISTAXIS [None]
  - MUSCULOSKELETAL PAIN [None]
  - APPARENT DEATH [None]
  - NECK PAIN [None]
  - IMPAIRED WORK ABILITY [None]
  - FEELING COLD [None]
  - BACK PAIN [None]
  - ABDOMINAL PAIN [None]
  - NIGHTMARE [None]
